FAERS Safety Report 4750090-1 (Version None)
Quarter: 2005Q3

REPORT INFORMATION
  Report Type: 
  Country: None (occurrence: None)
  Receive Date: 20050822
  Receipt Date: 20050804
  Transmission Date: 20060218
  Serious: Yes (Hospitalization)
  Sender: FDA-Public Use
  Company Number: 8010788

PATIENT
  Age: 44 Year
  Sex: Female
  Weight: 55 kg

DRUGS (5)
  1. KEPPRA [Suspect]
     Indication: EPILEPSY
     Dosage: 500 MG /D PO
     Route: 048
     Dates: start: 20040216, end: 20040514
  2. KEPPRA [Suspect]
     Indication: EPILEPSY
     Dosage: 3000 MG /D PO
     Route: 048
     Dates: start: 20040515, end: 20041101
  3. VALPROIC ACID [Concomitant]
  4. TOPIRAMATE [Concomitant]
  5. RIZATRIPTAN [Concomitant]

REACTIONS (2)
  - AMMONIA INCREASED [None]
  - THROMBOCYTOPENIA [None]
